FAERS Safety Report 16025965 (Version 2)
Quarter: 2025Q4

REPORT INFORMATION
  Report Type: Spontaneous
  Country: EU (occurrence: EU)
  Receive Date: 20190302
  Receipt Date: 20251230
  Transmission Date: 20260119
  Serious: Yes (Hospitalization)
  Sender: AUROBINDO
  Company Number: EU-AUROBINDO-AUR-APL-2019-010955

PATIENT
  Age: 85 Year
  Sex: Female
  Weight: 70 kg

DRUGS (3)
  1. PRAVASTATIN [Interacting]
     Active Substance: PRAVASTATIN
     Indication: Product used for unknown indication
     Dosage: UNK
     Route: 065
  2. WARFARIN SODIUM [Suspect]
     Active Substance: WARFARIN SODIUM
     Indication: Pulmonary embolism
     Dosage: 4 MILLIGRAM, DAILY
     Route: 061
     Dates: start: 20181226, end: 20190206
  3. KARDEGIC [Interacting]
     Active Substance: ASPIRIN DL-LYSINE
     Indication: Product used for unknown indication
     Dosage: UNK
     Route: 061

REACTIONS (2)
  - Anaemia [Recovered/Resolved]
  - Drug interaction [Unknown]

NARRATIVE: CASE EVENT DATE: 20190206
